FAERS Safety Report 4474789-X (Version None)
Quarter: 2004Q4

REPORT INFORMATION
  Report Type: 
  Country: None (occurrence: None)
  Receive Date: 20041014
  Receipt Date: 20040913
  Transmission Date: 20050328
  Serious: Yes (Other)
  Sender: FDA-Public Use
  Company Number: FR-MERCK-0409FRA00061

PATIENT
  Age: 55 Year
  Sex: Male

DRUGS (6)
  1. AMOXICILLIN AND CLAVULANATE POTASSIUM [Concomitant]
     Indication: PYELONEPHRITIS
     Route: 048
     Dates: start: 20040906, end: 20040909
  2. ASPIRIN [Concomitant]
     Indication: THROMBOSIS PROPHYLAXIS
     Route: 048
  3. HYDROCHLOROTHIAZIDE AND VALSARTAN [Concomitant]
     Indication: HYPERTENSION
     Route: 048
  4. METFORMIN [Concomitant]
     Indication: DIABETES MELLITUS NON-INSULIN-DEPENDENT
     Route: 048
  5. NOROXIN [Suspect]
     Indication: PYELONEPHRITIS
     Route: 048
     Dates: start: 20040906, end: 20040909
  6. SIMVASTATIN [Concomitant]
     Indication: HYPERCHOLESTEROLAEMIA
     Route: 048

REACTIONS (10)
  - AGGRESSION [None]
  - DECREASED APPETITE [None]
  - DIARRHOEA [None]
  - HALLUCINATION [None]
  - INSOMNIA [None]
  - MELAENA [None]
  - OESOPHAGEAL PAIN [None]
  - PYELONEPHRITIS [None]
  - RASH [None]
  - SUICIDAL IDEATION [None]
